FAERS Safety Report 5340371-5 (Version None)
Quarter: 2007Q2

REPORT INFORMATION
  Report Type: 
  Country: None (occurrence: None)
  Receive Date: 20070405
  Receipt Date: 20061222
  Transmission Date: 20071010
  Serious: No
  Sender: FDA-Public Use
  Company Number: US200612004238

PATIENT
  Age: 58 Year
  Sex: Female

DRUGS (6)
  1. CYMBALTA [Suspect]
     Indication: NEUROPATHY PERIPHERAL
     Dosage: SEE IMAGE
     Route: 048
     Dates: start: 20060101
  2. CYMBALTA [Suspect]
     Indication: NEUROPATHY PERIPHERAL
     Dosage: SEE IMAGE
     Route: 048
     Dates: start: 20060801
  3. PROZAC [Suspect]
     Indication: PANIC DISORDER
     Dosage: 80 MG, DAILY (1/D), ORAL
     Route: 048
     Dates: start: 19930101
  4. SYNTHROID [Concomitant]
  5. PRAVASTATIN ^SQUIBB^ (PRAVASTATIN) [Concomitant]
  6. FOCALIN /USA/ (DEXMETHYLPHENIDATE HYDROCHLORIDE) [Concomitant]

REACTIONS (6)
  - ARTHRALGIA [None]
  - DYSKINESIA [None]
  - DYSPEPSIA [None]
  - GASTROINTESTINAL DISORDER [None]
  - MUSCLE SPASMS [None]
  - STOMACH DISCOMFORT [None]
